FAERS Safety Report 9048460 (Version 1)
Quarter: 2013Q1

REPORT INFORMATION
  Report Type: Spontaneous
  Country: US (occurrence: None)
  Receive Date: 20130130
  Receipt Date: 20130130
  Transmission Date: 20140127
  Serious: Yes (Hospitalization)
  Sender: FDA-Public Use
  Company Number: None

PATIENT
  Age: 75 Year
  Sex: Male
  Weight: 65.5 kg

DRUGS (11)
  1. ASPIRIN [Suspect]
     Indication: CORONARY ARTERY DISEASE
     Dosage: CHRONIC
     Route: 048
  2. TRAZODONE [Concomitant]
  3. FLOMAX [Concomitant]
  4. ZOCOR [Concomitant]
  5. ZOLOFT [Concomitant]
  6. BYSTOLIC [Concomitant]
  7. CYTOMEL [Concomitant]
  8. DOCUSATE [Concomitant]
  9. CARDIZEM CD [Concomitant]
  10. VITAMIN B12 [Concomitant]
  11. XANAX [Concomitant]

REACTIONS (5)
  - Gastric ulcer [None]
  - Confusional state [None]
  - Orthostatic hypotension [None]
  - Gastrointestinal haemorrhage [None]
  - Sluggishness [None]
